FAERS Safety Report 7723835-6 (Version None)
Quarter: 2011Q3

REPORT INFORMATION
  Report Type: 
  Country: None (occurrence: None)
  Receive Date: 20110826
  Receipt Date: 20110817
  Transmission Date: 20111222
  Serious: Yes (Other)
  Sender: FDA-Public Use
  Company Number: 2011AP001792

PATIENT
  Age: 68 Year
  Sex: Female
  Weight: 73.0291 kg

DRUGS (14)
  1. GABAPENTIN [Concomitant]
  2. ZINGIBER OFFICINALE [Concomitant]
  3. B-KOMPLEX [Concomitant]
  4. LATANOPROST [Suspect]
     Indication: GLAUCOMA
     Dosage: 1 GTT; QD; OPH
     Route: 047
     Dates: start: 20110101
  5. CURCUMA LONGA RHIZOME [Concomitant]
  6. TOCOPHEROL CONCENTRATE CAP [Concomitant]
  7. IBUPROFEN [Concomitant]
  8. BIOTIN [Concomitant]
  9. RHIZOME [Concomitant]
  10. GINKGO BILOBA [Concomitant]
  11. BROMELAINS [Concomitant]
  12. LINUM USITATISSIMUM SEED OIL [Concomitant]
  13. CALCIUM ASCORBATE [Concomitant]
  14. UNCARIA TOMENTOSA [Concomitant]

REACTIONS (8)
  - ACQUIRED OESOPHAGEAL WEB [None]
  - OSTEOARTHRITIS [None]
  - OSTEOPENIA [None]
  - ROTATOR CUFF SYNDROME [None]
  - HIATUS HERNIA [None]
  - DIVERTICULITIS [None]
  - HYPOTHYROIDISM [None]
  - GASTRITIS EROSIVE [None]
